FAERS Safety Report 9612639 (Version 2)
Quarter: 2014Q2

REPORT INFORMATION
  Report Type: Spontaneous
  Country: GP (occurrence: FR)
  Receive Date: 20131010
  Receipt Date: 20140416
  Transmission Date: 20141212
  Serious: No
  Sender: FDA-Public Use
  Company Number: GP-ASTRAZENECA-2013SE74545

PATIENT
  Age: 26934 Day
  Sex: Female
  Weight: 38 kg

DRUGS (7)
  1. RAMIPRIL [Suspect]
     Indication: ACUTE CORONARY SYNDROME
     Route: 048
     Dates: start: 201304
  2. BRILIQUE [Suspect]
     Indication: ACUTE CORONARY SYNDROME
     Route: 048
     Dates: start: 201304
  3. TAHOR [Suspect]
     Indication: ACUTE CORONARY SYNDROME
     Route: 065
     Dates: start: 201304, end: 20131017
  4. TAHOR [Suspect]
     Indication: ACUTE CORONARY SYNDROME
     Route: 065
     Dates: start: 20131017
  5. MOPRAL [Suspect]
     Indication: ACUTE CORONARY SYNDROME
     Route: 048
     Dates: start: 201304
  6. KARDEGIC [Concomitant]
     Indication: ACUTE CORONARY SYNDROME
     Dates: start: 201304
  7. CARDENSIEL [Concomitant]
     Indication: ACUTE CORONARY SYNDROME
     Dates: start: 201304

REACTIONS (5)
  - Weight decreased [Recovered/Resolved]
  - Arterial disorder [Unknown]
  - Peripheral embolism [Unknown]
  - Blood pressure systolic increased [Unknown]
  - Diarrhoea [Recovered/Resolved]
